FAERS Safety Report 7514901-9 (Version None)
Quarter: 2011Q2

REPORT INFORMATION
  Report Type: 
  Country: None (occurrence: None)
  Receive Date: 20110425
  Receipt Date: 20090420
  Transmission Date: 20111010
  Serious: Yes (Life-Threatening, Hospitalization)
  Sender: FDA-Public Use
  Company Number: MC200900157

PATIENT
  Age: 65 Year
  Sex: Female
  Weight: 77 kg

DRUGS (1)
  1. ANGIOMAX [Suspect]
     Indication: CORONARY ANGIOPLASTY
     Dates: start: 20060617

REACTIONS (1)
  - CHEST PAIN [None]
